FAERS Safety Report 25811718 (Version 1)
Quarter: 2025Q3

REPORT INFORMATION
  Report Type: Spontaneous
  Country: US (occurrence: US)
  Receive Date: 20250917
  Receipt Date: 20250917
  Transmission Date: 20251020
  Serious: No
  Sender: ABBVIE
  Company Number: US-ABBVIE-6459333

PATIENT
  Age: 71 Year
  Sex: Female
  Weight: 47.627 kg

DRUGS (2)
  1. ESTRADIOL [Suspect]
     Active Substance: ESTRADIOL
     Indication: Vulvovaginal dryness
     Dosage: FORM STRENGTH: 0.1 GRAM
     Route: 061
     Dates: start: 20250904
  2. ESTRADIOL [Suspect]
     Active Substance: ESTRADIOL
     Dosage: 0.1 G AT NIGHT?FORM STRENGTH: 0.1 GRAM
     Route: 061
     Dates: start: 20250819, end: 20250902

REACTIONS (1)
  - Malabsorption [Not Recovered/Not Resolved]

NARRATIVE: CASE EVENT DATE: 20250801
